FAERS Safety Report 12331619 (Version 1)
Quarter: 2016Q2

REPORT INFORMATION
  Report Type: Spontaneous
  Country: US (occurrence: US)
  Receive Date: 20160504
  Receipt Date: 20160504
  Transmission Date: 20160815
  Serious: Yes (Other)
  Sender: FDA-Public Use
  Company Number: ADR-2015-01184

PATIENT
  Age: 66 Year
  Sex: Male

DRUGS (2)
  1. BACLOFEN. [Suspect]
     Active Substance: BACLOFEN
     Route: 037
  2. BACLOFEN. [Suspect]
     Active Substance: BACLOFEN
     Route: 037

REACTIONS (6)
  - Muscle spasticity [Unknown]
  - Insomnia [Unknown]
  - No therapeutic response [Unknown]
  - Muscle spasms [Unknown]
  - Performance status decreased [Unknown]
  - Pain [Unknown]

NARRATIVE: CASE EVENT DATE: 200304
